FAERS Safety Report 9748777 (Version 1)
Quarter: 2013Q4

REPORT INFORMATION
  Report Type: Spontaneous
  Country: GB (occurrence: None)
  Receive Date: 20131209
  Receipt Date: 20131209
  Transmission Date: 20140711
  Serious: Yes (Other)
  Sender: FDA-Public Use
  Company Number: AUR-APL-2013-10090

PATIENT
  Age: 22 Year
  Sex: Male

DRUGS (1)
  1. CITALOPRAM [Suspect]
     Indication: AFFECTIVE DISORDER
     Dosage: 20MG, UNKNOWN

REACTIONS (3)
  - Vision blurred [None]
  - Chills [None]
  - Cluster headache [None]
